FAERS Safety Report 23198182 (Version 2)
Quarter: 2024Q1

REPORT INFORMATION
  Report Type: Report from Study
  Country: US (occurrence: US)
  Receive Date: 20231117
  Receipt Date: 20240327
  Transmission Date: 20240410
  Serious: Yes (Hospitalization)
  Sender: FDA-Public Use
  Company Number: US-Eisai-EC-2023-152892

PATIENT
  Age: 74 Year
  Sex: Male
  Weight: 98.87 kg

DRUGS (4)
  1. LENVATINIB [Suspect]
     Active Substance: LENVATINIB
     Indication: Renal cell carcinoma
     Route: 048
     Dates: start: 20231019
  2. LENVATINIB [Suspect]
     Active Substance: LENVATINIB
     Indication: Tumour thrombosis
  3. PEMBROLIZUMAB [Suspect]
     Active Substance: PEMBROLIZUMAB
     Indication: Renal cell carcinoma
     Dosage: Q3W, UNKNOWN
     Dates: start: 20231019
  4. PEMBROLIZUMAB [Suspect]
     Active Substance: PEMBROLIZUMAB
     Indication: Tumour thrombosis

REACTIONS (3)
  - Cardiac failure [Unknown]
  - Shock [Unknown]
  - Myocarditis [Unknown]

NARRATIVE: CASE EVENT DATE: 20231108
